FAERS Safety Report 8776521 (Version 1)
Quarter: 2012Q4

REPORT INFORMATION
  Report Type: 
  Country: MX (occurrence: MX)
  Receive Date: 20120910
  Receipt Date: 20120910
  Transmission Date: 20130627
  Serious: Yes (Other)
  Sender: FDA-Public Use
  Company Number: PHHY2012MX077975

PATIENT
  Sex: Female

DRUGS (3)
  1. TRILEPTAL [Suspect]
     Indication: CONVULSION
     Dosage: 2 DF, UNK
  2. ACLASTA [Suspect]
     Indication: CALCIUM DEFICIENCY
     Dosage: 1 DF, (5mg/100ml)
  3. AROPAX [Concomitant]

REACTIONS (1)
  - Fracture [Unknown]
